FAERS Safety Report 23934512 (Version 1)
Quarter: 2024Q2

REPORT INFORMATION
  Report Type: Spontaneous
  Country: JO (occurrence: JO)
  Receive Date: 20240603
  Receipt Date: 20240603
  Transmission Date: 20240716
  Serious: Yes (Other)
  Sender: FDA-Public Use
  Company Number: JO-MLMSERVICE-20240522-PI072069-00117-1

PATIENT
  Age: 19 Month
  Sex: Male

DRUGS (8)
  1. DEXAMETHASONE [Suspect]
     Active Substance: DEXAMETHASONE
     Indication: B-cell type acute leukaemia
     Route: 065
     Dates: start: 202203
  2. METHOTREXATE [Concomitant]
     Active Substance: METHOTREXATE
     Indication: B-cell type acute leukaemia
     Route: 029
     Dates: start: 202203
  3. PEGASPARGASE [Concomitant]
     Active Substance: PEGASPARGASE
     Indication: B-cell type acute leukaemia
     Dates: start: 202203
  4. CYTARABINE [Concomitant]
     Active Substance: CYTARABINE
     Indication: B-cell type acute leukaemia
     Dosage: INTRATHECAL
     Route: 037
     Dates: start: 202203
  5. DESMOPRESSIN [Concomitant]
     Active Substance: DESMOPRESSIN
     Indication: Diabetes insipidus
     Dates: start: 20210411
  6. VINCRISTINE [Concomitant]
     Active Substance: VINCRISTINE
     Indication: B-cell type acute leukaemia
     Dates: start: 202203
  7. HYDROCHLOROTHIAZIDE [Concomitant]
     Active Substance: HYDROCHLOROTHIAZIDE
     Indication: Congenital nephrogenic diabetes insipidus
     Dates: start: 20210413
  8. AMILORIDE [Concomitant]
     Active Substance: AMILORIDE
     Indication: Congenital nephrogenic diabetes insipidus
     Dates: start: 20210413

REACTIONS (4)
  - Polydipsia [Recovering/Resolving]
  - Blood sodium abnormal [Recovered/Resolved]
  - Polyuria [Recovering/Resolving]
  - Condition aggravated [Recovering/Resolving]

NARRATIVE: CASE EVENT DATE: 20220301
